FAERS Safety Report 4307746-4 (Version None)
Quarter: 2004Q1

REPORT INFORMATION
  Report Type: 
  Country: None (occurrence: None)
  Receive Date: 20040227
  Receipt Date: 20040227
  Transmission Date: 20041129
  Serious: Yes (Other)
  Sender: FDA-Public Use
  Company Number: None

PATIENT
  Age: 4 Month
  Sex: Male
  Weight: 9.5255 kg

DRUGS (2)
  1. ZOFRAN [Suspect]
     Indication: NAUSEA
     Dosage: 4-8 MG PO TID PRN NAUSEA
     Route: 048
     Dates: start: 20010901, end: 20011101
  2. ZOFRAN [Suspect]
     Indication: VOMITING IN PREGNANCY
     Dosage: 4-8 MG PO TID PRN NAUSEA
     Route: 048
     Dates: start: 20010901, end: 20011101

REACTIONS (3)
  - MATERNAL DRUGS AFFECTING FOETUS [None]
  - NERVOUS SYSTEM DISORDER [None]
  - TRICHOTILLOMANIA [None]
